FAERS Safety Report 11907056 (Version 2)
Quarter: 2016Q1

REPORT INFORMATION
  Report Type: Report from Study
  Country: US (occurrence: US)
  Receive Date: 20160111
  Receipt Date: 20160329
  Transmission Date: 20160526
  Serious: Yes (Death, Other)
  Sender: FDA-Public Use
  Company Number: US-GILEAD-2016-0191838

PATIENT
  Age: 44 Year
  Sex: Female
  Weight: 121.9 kg

DRUGS (15)
  1. AMBRISENTAN [Suspect]
     Active Substance: AMBRISENTAN
     Indication: PULMONARY ARTERIAL HYPERTENSION
     Dosage: 10 MG, QD
     Route: 065
     Dates: start: 20111117, end: 20151216
  2. CLARITIN [Concomitant]
     Active Substance: LORATADINE
  3. MIRENA [Concomitant]
     Active Substance: LEVONORGESTREL
  4. LIPITOR [Concomitant]
     Active Substance: ATORVASTATIN CALCIUM
  5. ERGOCALCIFEROL. [Concomitant]
     Active Substance: ERGOCALCIFEROL
  6. DITROPAN [Concomitant]
     Active Substance: OXYBUTYNIN CHLORIDE
  7. ALDACTONE [Concomitant]
     Active Substance: SPIRONOLACTONE
  8. ADCIRCA [Concomitant]
     Active Substance: TADALAFIL
  9. ORENITRAM [Concomitant]
     Active Substance: TREPROSTINIL
  10. VASOTEC [Concomitant]
     Active Substance: ENALAPRIL MALEATE
  11. XARELTO [Concomitant]
     Active Substance: RIVAROXABAN
  12. VENTOLIN HFA [Concomitant]
     Active Substance: ALBUTEROL SULFATE
  13. ZADITOR                            /00495201/ [Concomitant]
  14. GLUCOPHAGE [Concomitant]
     Active Substance: METFORMIN HYDROCHLORIDE
  15. DEMADEX [Concomitant]
     Active Substance: TORSEMIDE

REACTIONS (1)
  - Death [Fatal]

NARRATIVE: CASE EVENT DATE: 20151216
